FAERS Safety Report 4497843-5 (Version None)
Quarter: 2004Q4

REPORT INFORMATION
  Report Type: 
  Country: None (occurrence: None)
  Receive Date: 20041110
  Receipt Date: 20041004
  Transmission Date: 20050328
  Serious: Yes (Other)
  Sender: FDA-Public Use
  Company Number: JP-GLAXOSMITHKLINE-B0347534A

PATIENT
  Age: 71 Year
  Sex: Male

DRUGS (2)
  1. VALTREX [Suspect]
     Indication: HERPES ZOSTER
     Dosage: 1000MG THREE TIMES PER DAY
     Route: 048
     Dates: start: 20040924, end: 20040925
  2. LOXONIN [Concomitant]
     Indication: HERPES ZOSTER
     Dosage: 60MG PER DAY
     Route: 048
     Dates: start: 20040924, end: 20040925

REACTIONS (6)
  - ABASIA [None]
  - ASTHENIA [None]
  - HALLUCINATION [None]
  - NERVOUS SYSTEM DISORDER [None]
  - OVERDOSE [None]
  - SPEECH DISORDER [None]
